FAERS Safety Report 5315498-4 (Version None)
Quarter: 2007Q1

REPORT INFORMATION
  Report Type: 
  Country: None (occurrence: None)
  Receive Date: 20070130
  Receipt Date: 20070130
  Transmission Date: 20070707
  Serious: Yes (Hospitalization)
  Sender: FDA-Public Use
  Company Number: 151414USA

PATIENT
  Age: 44 Year
  Sex: Female

DRUGS (2)
  1. COPAXONE [Suspect]
     Indication: MULTIPLE SCLEROSIS
     Dosage: (20 MG, SUBCUTANEOUS)
     Route: 058
     Dates: start: 20040601
  2. TIZANIDINE HCL [Concomitant]

REACTIONS (2)
  - MONARTHRITIS [None]
  - OSTEOARTHRITIS [None]
